FAERS Safety Report 21963253 (Version 1)
Quarter: 2023Q1

REPORT INFORMATION
  Report Type: Report from Study
  Country: JP (occurrence: JP)
  Receive Date: 20230207
  Receipt Date: 20230207
  Transmission Date: 20230418
  Serious: Yes (Death)
  Sender: FDA-Public Use
  Company Number: JP-TAKEDA-2022TJP063402

PATIENT
  Age: 73 Year
  Sex: Male
  Weight: 60 kg

DRUGS (13)
  1. LEUPROLIDE ACETATE [Suspect]
     Active Substance: LEUPROLIDE ACETATE
     Indication: Bulbospinal muscular atrophy congenital
     Dosage: 11.25 MILLIGRAM, Q3MONTHS
     Route: 058
     Dates: start: 20171101, end: 20201006
  2. LEUPROLIDE ACETATE [Suspect]
     Active Substance: LEUPROLIDE ACETATE
     Indication: Product used for unknown indication
  3. ROZEREM [Concomitant]
     Active Substance: RAMELTEON
     Indication: Insomnia
     Dosage: 8 MILLIGRAM
     Route: 065
     Dates: end: 20201119
  4. BROTIZOLAM [Concomitant]
     Active Substance: BROTIZOLAM
     Indication: Insomnia
     Dosage: 0.25 MILLIGRAM
     Route: 065
     Dates: end: 20201119
  5. CARBOCYSTEINE [Concomitant]
     Active Substance: CARBOCYSTEINE
     Indication: Bronchitis chronic
     Dosage: 1500 MILLIGRAM
     Route: 065
     Dates: end: 20181003
  6. XARELTO [Concomitant]
     Active Substance: RIVAROXABAN
     Indication: Product used for unknown indication
     Dosage: 15 MILLIGRAM
     Route: 065
     Dates: end: 20201119
  7. CARVEDILOL [Concomitant]
     Active Substance: CARVEDILOL
     Indication: Product used for unknown indication
     Dosage: 5 MILLIGRAM
     Route: 065
     Dates: end: 20201119
  8. CANDESARTAN [Concomitant]
     Active Substance: CANDESARTAN
     Indication: Product used for unknown indication
     Dosage: 4 MILLIGRAM
     Route: 065
     Dates: end: 20201119
  9. RABEPRAZOLE SODIUM [Concomitant]
     Active Substance: RABEPRAZOLE SODIUM
     Indication: Gastrooesophageal reflux disease
     Dosage: 10 MILLIGRAM
     Route: 065
     Dates: end: 20201119
  10. BIO-THREE [Concomitant]
     Active Substance: HERBALS
     Indication: Constipation
     Dosage: 2 DOSAGE FORM
     Route: 065
     Dates: end: 20201119
  11. URSODIOL [Concomitant]
     Active Substance: URSODIOL
     Indication: Cholelithiasis
     Dosage: 200 MILLIGRAM
     Route: 065
     Dates: end: 20201119
  12. MAGNESIUM OXIDE [Concomitant]
     Active Substance: MAGNESIUM OXIDE
     Indication: Constipation
     Dosage: 990 MILLIGRAM
     Route: 065
     Dates: end: 20191009
  13. MAGNESIUM OXIDE [Concomitant]
     Active Substance: MAGNESIUM OXIDE
     Indication: Constipation
     Dosage: 750 MILLIGRAM
     Route: 065
     Dates: start: 20191010, end: 20201119

REACTIONS (2)
  - Hypercapnia [Fatal]
  - Injection site infection [Recovering/Resolving]

NARRATIVE: CASE EVENT DATE: 20190903
